FAERS Safety Report 4710484-7 (Version None)
Quarter: 2005Q3

REPORT INFORMATION
  Report Type: 
  Country: None (occurrence: None)
  Receive Date: 20050711
  Receipt Date: 20050630
  Transmission Date: 20060218
  Serious: Yes (Hospitalization)
  Sender: FDA-Public Use
  Company Number: 2005UW09965

PATIENT
  Age: 75 Year
  Sex: Female

DRUGS (11)
  1. CRESTOR [Suspect]
     Route: 048
     Dates: start: 20041201
  2. MIRAPEX [Concomitant]
     Indication: PARKINSON'S DISEASE
  3. MIRAPEX [Concomitant]
     Indication: RESTLESS LEGS SYNDROME
  4. LEXAPRO [Concomitant]
  5. ATENOLOL [Concomitant]
     Route: 048
  6. SPIRONOLACTONE/HYDROCHLOROTHIAZIDE [Concomitant]
  7. METFORMIN [Concomitant]
  8. MINOXIDIL [Concomitant]
  9. ENALAPRIL MALEATE [Concomitant]
  10. ACTONEL [Concomitant]
  11. AMARYL [Concomitant]

REACTIONS (4)
  - ABDOMINAL PAIN [None]
  - BLOOD GLUCOSE INCREASED [None]
  - BLOOD UREA INCREASED [None]
  - RHABDOMYOLYSIS [None]
